FAERS Safety Report 24407720 (Version 1)
Quarter: 2024Q4

REPORT INFORMATION
  Report Type: Spontaneous
  Country: US (occurrence: US)
  Receive Date: 20241007
  Receipt Date: 20241007
  Transmission Date: 20250114
  Serious: Yes (Death, Hospitalization)
  Sender: MYLAN
  Company Number: US-MYLANLABS-2024M1088167

PATIENT
  Age: 55 Year
  Sex: Male

DRUGS (11)
  1. DOXYCYCLINE [Suspect]
     Active Substance: DOXYCYCLINE
     Indication: Vibrio vulnificus infection
     Dosage: UNK
     Route: 042
  2. DOXYCYCLINE [Suspect]
     Active Substance: DOXYCYCLINE
     Indication: Septic shock
  3. NOREPINEPHRINE [Suspect]
     Active Substance: NOREPINEPHRINE\NOREPINEPHRINE BITARTRATE
     Indication: Septic shock
     Dosage: UNK
     Route: 065
  4. PIPERACILLIN AND TAZOBACTAM [Suspect]
     Active Substance: PIPERACILLIN SODIUM\TAZOBACTAM SODIUM
     Indication: Vibrio vulnificus infection
     Dosage: UNK
     Route: 042
  5. PIPERACILLIN AND TAZOBACTAM [Suspect]
     Active Substance: PIPERACILLIN SODIUM\TAZOBACTAM SODIUM
     Indication: Septic shock
  6. CLINDAMYCIN [Suspect]
     Active Substance: CLINDAMYCIN
     Indication: Vibrio vulnificus infection
     Dosage: UNK
     Route: 042
  7. CLINDAMYCIN [Suspect]
     Active Substance: CLINDAMYCIN
     Indication: Septic shock
  8. MEROPENEM [Suspect]
     Active Substance: MEROPENEM
     Indication: Vibrio vulnificus infection
     Dosage: UNK
     Route: 042
  9. MEROPENEM [Suspect]
     Active Substance: MEROPENEM
     Indication: Septic shock
  10. PHENYLEPHRINE [Suspect]
     Active Substance: PHENYLEPHRINE HYDROCHLORIDE
     Indication: Septic shock
     Dosage: UNK
     Route: 065
  11. VASOPRESSIN [Suspect]
     Active Substance: VASOPRESSIN
     Indication: Septic shock
     Dosage: UNK
     Route: 065

REACTIONS (1)
  - Drug ineffective [Fatal]
